FAERS Safety Report 6432159-9 (Version None)
Quarter: 2009Q4

REPORT INFORMATION
  Report Type: 
  Country: None (occurrence: None)
  Receive Date: 20091109
  Receipt Date: 20091030
  Transmission Date: 20100525
  Serious: Yes (Hospitalization)
  Sender: FDA-Public Use
  Company Number: US-NOVOPROD-300181

PATIENT
  Sex: Male

DRUGS (4)
  1. LEVEMIR [Suspect]
     Indication: DIABETES MELLITUS
     Dosage: 1800 IU, SINGLE
     Route: 058
     Dates: start: 20091001, end: 20091001
  2. LEVEMIR [Suspect]
     Indication: SUICIDE ATTEMPT
     Dosage: UNKNOWN
     Route: 058
  3. ALL OTHER THERAPEUTIC PRODUCTS [Suspect]
     Indication: DRUG USE FOR UNKNOWN INDICATION
     Dosage: UNKNOWN
     Route: 048
  4. ALL OTHER THERAPEUTIC PRODUCTS [Suspect]
     Indication: SUICIDE ATTEMPT

REACTIONS (1)
  - SUICIDE ATTEMPT [None]
